FAERS Safety Report 22841408 (Version 4)
Quarter: 2023Q4

REPORT INFORMATION
  Report Type: Report from Study
  Country: US (occurrence: US)
  Receive Date: 20230820
  Receipt Date: 20231012
  Transmission Date: 20240110
  Serious: Yes (Hospitalization, Other)
  Sender: FDA-Public Use
  Company Number: US-ABBVIE-5371499

PATIENT
  Sex: Male
  Weight: 92 kg

DRUGS (10)
  1. IMBRUVICA [Suspect]
     Active Substance: IBRUTINIB
     Indication: Chronic lymphocytic leukaemia
     Dosage: FORM STRENGTH: 420 MG
     Route: 048
     Dates: start: 20210623
  2. IMBRUVICA [Suspect]
     Active Substance: IBRUTINIB
     Indication: Chronic lymphocytic leukaemia
     Dosage: 420 MILLIGRAM
     Route: 048
     Dates: start: 20210817, end: 20230810
  3. RAMELTEON [Concomitant]
     Active Substance: RAMELTEON
     Indication: Product used for unknown indication
  4. METOPROLOL [Concomitant]
     Active Substance: METOPROLOL
     Indication: Product used for unknown indication
     Dosage: 25 MILLIGRAM
  5. TAMSULOSIN [Concomitant]
     Active Substance: TAMSULOSIN
     Indication: Product used for unknown indication
  6. FINASTERIDE [Concomitant]
     Active Substance: FINASTERIDE
     Indication: Product used for unknown indication
  7. ASPIRIN [Concomitant]
     Active Substance: ASPIRIN
     Indication: Product used for unknown indication
  8. GABAPENTIN [Concomitant]
     Active Substance: GABAPENTIN
     Indication: Product used for unknown indication
  9. ANEXA [Concomitant]
     Indication: Product used for unknown indication
     Dosage: 500 MILLIGRAM
  10. ATORVASTATIN [Concomitant]
     Active Substance: ATORVASTATIN
     Indication: Product used for unknown indication

REACTIONS (13)
  - Spinal instability [Unknown]
  - Back pain [Recovered/Resolved]
  - Haemoglobin decreased [Unknown]
  - Arthralgia [Recovered/Resolved]
  - Full blood count abnormal [Unknown]
  - Gait disturbance [Recovered/Resolved]
  - Platelet count decreased [Recovering/Resolving]
  - Sciatica [Recovered/Resolved]
  - Incision site discharge [Unknown]
  - Intervertebral disc protrusion [Recovered/Resolved]
  - Lumbar spinal stenosis [Recovered/Resolved]
  - Intervertebral disc disorder [Recovered/Resolved]
  - Musculoskeletal discomfort [Recovering/Resolving]

NARRATIVE: CASE EVENT DATE: 20210101
